FAERS Safety Report 23368285 (Version 1)
Quarter: 2024Q1

REPORT INFORMATION
  Report Type: Spontaneous
  Country: JP (occurrence: JP)
  Receive Date: 20240105
  Receipt Date: 20240105
  Transmission Date: 20240410
  Serious: Yes (Hospitalization, Other)
  Sender: FDA-Public Use
  Company Number: JP-Accord-399001

PATIENT
  Age: 76 Year
  Sex: Female

DRUGS (5)
  1. METHOTREXATE [Suspect]
     Active Substance: METHOTREXATE
     Indication: Rheumatoid arthritis
     Dates: start: 2016
  2. TOCILIZUMAB [Concomitant]
     Active Substance: TOCILIZUMAB
     Indication: Rheumatoid arthritis
     Dates: start: 2016
  3. IGURATIMOD [Concomitant]
     Active Substance: IGURATIMOD
     Indication: Rheumatoid arthritis
     Dates: start: 2016
  4. AMOXICILLIN [Concomitant]
     Active Substance: AMOXICILLIN
     Indication: Antiinflammatory therapy
  5. DENOSUMAB [Concomitant]
     Active Substance: DENOSUMAB
     Indication: Osteoporosis
     Dates: start: 2019

REACTIONS (4)
  - Lymphoproliferative disorder [Recovered/Resolved]
  - Immunodeficiency [Recovered/Resolved]
  - Epstein-Barr virus infection [Recovered/Resolved]
  - Diffuse large B-cell lymphoma [Recovered/Resolved]
